FAERS Safety Report 10598273 (Version 3)
Quarter: 2014Q4

REPORT INFORMATION
  Report Type: Spontaneous
  Country: JP (occurrence: JP)
  Receive Date: 20141121
  Receipt Date: 20141204
  Transmission Date: 20150529
  Serious: Yes (Death, Life-Threatening, Hospitalization)
  Sender: FDA-Public Use
  Company Number: JP-PFIZER INC-2014316074

PATIENT
  Age: 28 Year
  Sex: Female
  Weight: 36.2 kg

DRUGS (15)
  1. ZITHROMAC [Suspect]
     Active Substance: AZITHROMYCIN DIHYDRATE
     Indication: PNEUMONIA
     Dosage: 500 MG (250 MG TABLET X2), ONCE DAILY  (IN THE MORNING)
     Route: 048
     Dates: start: 20141107, end: 20141109
  2. ISOPRINOSINE [Suspect]
     Active Substance: INOSINE PRANOBEX
     Indication: SUBACUTE SCLEROSING PANENCEPHALITIS
     Dosage: 1600 MG, DAILY (400 MG-400 MG-800 MG, AFTER EACH MEAL)
     Route: 048
     Dates: start: 20140901
  3. URSODEOXYCHOLIC ACID [Suspect]
     Active Substance: URSODIOL
     Indication: CHOLESTASIS
     Dosage: 100 MG, THREE TIMES A DAY (AFTER EACH MEAL)
     Route: 048
     Dates: start: 20140901
  4. ALEVIATIN [Suspect]
     Active Substance: PHENYTOIN SODIUM
     Indication: EPILEPSY
     Dosage: 70 MG, TWICE DAILY (AFTER BREAKFAST AND DINNER)
     Route: 048
     Dates: start: 20140901
  5. BENZMARONE [Suspect]
     Active Substance: BENZBROMARONE
     Indication: HYPERURICAEMIA
     Dosage: 50 MG, DAILY (AFTER BREAKFAST)
     Route: 048
     Dates: start: 20140901
  6. MIYA-BM [Suspect]
     Active Substance: CLOSTRIDIUM BUTYRICUM SPORES STRAIN M-55
     Indication: CONSTIPATION
     Dosage: 2 TABLETS, THREE TIMES A DAY (AFTER EACH MEAL)
     Route: 048
     Dates: start: 20140901
  7. GASTER [Suspect]
     Active Substance: FAMOTIDINE
     Indication: GASTROOESOPHAGEAL REFLUX DISEASE
     Dosage: 20 MG, TWICE DAILY (AFTER BREAKFAST AND DINNER)
     Route: 048
     Dates: start: 20140901
  8. AVELOX [Suspect]
     Active Substance: MOXIFLOXACIN HYDROCHLORIDE
     Indication: PNEUMONIA
  9. VALPROATE SODIUM. [Suspect]
     Active Substance: VALPROATE SODIUM
     Indication: EPILEPSY
     Dosage: 400 MG, TWICE DAILY (IN THE MORNING AND EVENING)
     Route: 048
     Dates: start: 20140901
  10. MINOFIT [Concomitant]
     Active Substance: CYSTEINE\GLYCINE\GLYCYRRHIZIN
     Indication: HEPATIC FUNCTION ABNORMAL
     Dosage: 40 ML, ONCE DAILY
     Route: 042
     Dates: start: 20141110
  11. CEFTRIAXONE PFIZER [Suspect]
     Active Substance: CEFTRIAXONE
     Indication: PNEUMONIA
     Dosage: 1 G, ONCE DAILY
     Route: 041
     Dates: start: 20141110, end: 20141113
  12. AVELOX [Suspect]
     Active Substance: MOXIFLOXACIN HYDROCHLORIDE
     Indication: URINARY TRACT INFECTION
     Dosage: 400 MG ONCE DAILY (IN THE MORNING)
     Route: 048
     Dates: start: 20141028, end: 20141106
  13. CRAVIT [Suspect]
     Active Substance: LEVOFLOXACIN
     Indication: PNEUMONIA
     Dosage: 500 MG, ONCE DAILY
     Route: 041
     Dates: start: 20141110
  14. URALYT-U [Suspect]
     Active Substance: POTASSIUM CITRATE\TRISODIUM CITRATE DIHYDRATE
     Indication: THERAPEUTIC PROCEDURE
     Dosage: 0.5 G, THREE TIMES A DAY (AFTER EACH MEAL)
     Route: 048
     Dates: start: 20140901
  15. BFLUID [Concomitant]
     Active Substance: AMINO ACIDS\DEXTROSE\ELECTROLYTES NOS\VITAMINS
     Indication: FLUID REPLACEMENT
     Dosage: 500 ML, 4X/DAY
     Route: 042
     Dates: start: 20141110

REACTIONS (3)
  - Drug-induced liver injury [Fatal]
  - Cardiac failure acute [Fatal]
  - Acute kidney injury [Fatal]

NARRATIVE: CASE EVENT DATE: 20141110
